FAERS Safety Report 5146646-7 (Version None)
Quarter: 2006Q4

REPORT INFORMATION
  Report Type: 
  Country: None (occurrence: None)
  Receive Date: 20061109
  Receipt Date: 20061031
  Transmission Date: 20070319
  Serious: Yes (Life-Threatening)
  Sender: FDA-Public Use
  Company Number: GB-AVENTIS-200621411GDDC

PATIENT
  Age: 47 Year
  Sex: Male
  Weight: 87 kg

DRUGS (3)
  1. ARAVA [Suspect]
     Indication: PSORIATIC ARTHROPATHY
     Route: 048
     Dates: start: 20060704, end: 20060714
  2. ACETAMINOPHEN W/ CODEINE [Concomitant]
     Indication: PSORIATIC ARTHROPATHY
     Dosage: DOSE: 8 PER DAY
     Route: 048
  3. SALAZOPYRIN [Concomitant]
     Indication: PSORIATIC ARTHROPATHY
     Route: 048
     Dates: start: 20020101, end: 20060605

REACTIONS (2)
  - MYOCARDIAL INFARCTION [None]
  - THROMBOLYSIS [None]
